FAERS Safety Report 25641363 (Version 1)
Quarter: 2025Q3

REPORT INFORMATION
  Report Type: Spontaneous
  Country: US (occurrence: US)
  Receive Date: 20250804
  Receipt Date: 20250804
  Transmission Date: 20251020
  Serious: Yes (Life-Threatening, Hospitalization, Other)
  Sender: B. BRAUN MEDICAL INC.
  Company Number: US-MLMSERVICE-20250710-PI573319-00201-1

PATIENT
  Age: 62 Year
  Sex: Male

DRUGS (1)
  1. LIDOCAINE [Suspect]
     Active Substance: LIDOCAINE
     Indication: Local anaesthesia

REACTIONS (3)
  - Status epilepticus [Recovered/Resolved]
  - Shock [Recovered/Resolved]
  - Local anaesthetic systemic toxicity [Recovered/Resolved]
